FAERS Safety Report 22830887 (Version 4)
Quarter: 2023Q4

REPORT INFORMATION
  Report Type: Report from Study
  Country: MX (occurrence: MX)
  Receive Date: 20230817
  Receipt Date: 20231222
  Transmission Date: 20240109
  Serious: Yes (Other)
  Sender: FDA-Public Use
  Company Number: MX-UCBSA-2023040954

PATIENT
  Sex: Female
  Weight: 52 kg

DRUGS (1)
  1. CERTOLIZUMAB PEGOL [Suspect]
     Active Substance: CERTOLIZUMAB PEGOL
     Indication: Rheumatoid arthritis
     Dosage: 400 MILLIGRAM, EV 4 WEEKS
     Route: 058
     Dates: start: 20220120, end: 202301

REACTIONS (7)
  - Infection [Unknown]
  - Rheumatoid arthritis [Recovering/Resolving]
  - Arthritis bacterial [Recovered/Resolved]
  - Urinary tract infection [Recovered/Resolved]
  - Surgery [Unknown]
  - Drug ineffective [Unknown]
  - Product use issue [Unknown]

NARRATIVE: CASE EVENT DATE: 20220101
